FAERS Safety Report 13839242 (Version 1)
Quarter: 2017Q3

REPORT INFORMATION
  Report Type: Spontaneous
  Country: GB (occurrence: GB)
  Receive Date: 20170807
  Receipt Date: 20170807
  Transmission Date: 20171127
  Serious: Yes (Other)
  Sender: FDA-Public Use
  Company Number: GB-AUROBINDO-AUR-APL-2017-38030

PATIENT
  Age: 37 Year
  Sex: Female
  Weight: 78 kg

DRUGS (2)
  1. RAMIPRIL 1.25MG [Suspect]
     Active Substance: RAMIPRIL
     Indication: PRODUCT USED FOR UNKNOWN INDICATION
     Dosage: 1.25 MG, UNK
     Route: 048
     Dates: start: 20170714
  2. PROGESTERONE. [Concomitant]
     Active Substance: PROGESTERONE
     Indication: CONTRACEPTION
     Route: 065

REACTIONS (5)
  - Dizziness [Not Recovered/Not Resolved]
  - Throat tightness [Not Recovered/Not Resolved]
  - Vertigo [Unknown]
  - Sensation of foreign body [Unknown]
  - Nausea [Unknown]

NARRATIVE: CASE EVENT DATE: 201707
